FAERS Safety Report 7010990-9 (Version None)
Quarter: 2010Q3

REPORT INFORMATION
  Report Type: 
  Country: None (occurrence: None)
  Receive Date: 20100923
  Receipt Date: 20081113
  Transmission Date: 20110219
  Serious: No
  Sender: FDA-Public Use
  Company Number: US-WYE-H05249708

PATIENT
  Age: 77 Year
  Sex: Male
  Weight: 59.02 kg

DRUGS (8)
  1. EFFEXOR XR [Suspect]
     Indication: ANXIETY
     Route: 048
     Dates: start: 20080301, end: 20080101
  2. EFFEXOR XR [Suspect]
     Indication: DEPRESSION
     Route: 048
     Dates: start: 20080101, end: 20080101
  3. EFFEXOR XR [Suspect]
     Indication: PANIC ATTACK
     Route: 048
     Dates: start: 20080101
  4. CARDURA [Concomitant]
  5. CLONAZEPAM [Concomitant]
  6. REMERON [Concomitant]
  7. SINEMET [Concomitant]
  8. BENICAR [Concomitant]

REACTIONS (2)
  - DRUG INEFFECTIVE [None]
  - MEDICATION RESIDUE [None]
